FAERS Safety Report 14843445 (Version 1)
Quarter: 2018Q2

REPORT INFORMATION
  Report Type: Report from Study
  Country: US (occurrence: US)
  Receive Date: 20180503
  Receipt Date: 20180503
  Transmission Date: 20180711
  Serious: Yes (Other)
  Sender: FDA-Public Use
  Company Number: US-PFIZER INC-2018032710

PATIENT
  Age: 77 Year
  Sex: Male

DRUGS (1)
  1. SUTENT [Suspect]
     Active Substance: SUNITINIB MALATE
     Indication: RENAL CELL CARCINOMA
     Dosage: 50 MG, DAILY
     Route: 048
     Dates: start: 20180102

REACTIONS (8)
  - Sinus congestion [Unknown]
  - Dysgeusia [Unknown]
  - Palmar-plantar erythrodysaesthesia syndrome [Unknown]
  - Epistaxis [Unknown]
  - Fatigue [Unknown]
  - Dry skin [Unknown]
  - Induration [Unknown]
  - Diarrhoea [Unknown]

NARRATIVE: CASE EVENT DATE: 2018
